FAERS Safety Report 5321280-4 (Version None)
Quarter: 2007Q2

REPORT INFORMATION
  Report Type: 
  Country: None (occurrence: None)
  Receive Date: 20070507
  Receipt Date: 20070507
  Transmission Date: 20071010
  Serious: Yes (Other)
  Sender: FDA-Public Use
  Company Number: None

PATIENT
  Sex: Female
  Weight: 56.6996 kg

DRUGS (1)
  1. ISOTRETINOIN [Suspect]
     Indication: ACNE
     Dosage: 40MG DAILY PO
     Route: 048
     Dates: start: 20061001, end: 20070301

REACTIONS (5)
  - ALOPECIA [None]
  - AUTOIMMUNE DISORDER [None]
  - BLADDER DISORDER [None]
  - CYSTITIS HAEMORRHAGIC [None]
  - CYSTITIS INTERSTITIAL [None]
